FAERS Safety Report 5417771-8 (Version None)
Quarter: 2007Q3

REPORT INFORMATION
  Report Type: 
  Country: None (occurrence: None)
  Receive Date: 20070817
  Receipt Date: 20070813
  Transmission Date: 20080115
  Serious: Yes (Death)
  Sender: FDA-Public Use
  Company Number: PHBS2007BR13463

PATIENT
  Age: 42 Year
  Sex: Male
  Weight: 110 kg

DRUGS (5)
  1. LORAX [Concomitant]
     Dosage: 1 MG, UNK
     Dates: start: 20070301
  2. LEPONEX [Suspect]
     Indication: SCHIZOPHRENIA
     Dosage: 200 MG / D
     Route: 048
  3. LEPONEX [Suspect]
     Dosage: 300 MG, D
     Route: 048
     Dates: start: 19960518
  4. LEPONEX [Suspect]
     Dosage: 100 MG, D
     Route: 048
     Dates: start: 20061001
  5. LEPONEX [Suspect]
     Dosage: UNK, QMO
     Route: 048

REACTIONS (3)
  - PANCREATITIS HAEMORRHAGIC [None]
  - WEIGHT DECREASED [None]
  - WEIGHT INCREASED [None]
